FAERS Safety Report 5356356-9 (Version None)
Quarter: 2007Q2

REPORT INFORMATION
  Report Type: 
  Country: None (occurrence: None)
  Receive Date: 20070530
  Receipt Date: 20061106
  Transmission Date: 20071010
  Serious: Yes (Hospitalization, Other)
  Sender: FDA-Public Use
  Company Number: US200609004137

PATIENT
  Age: 34 Year
  Sex: Male
  Weight: 133.8 kg

DRUGS (1)
  1. ZYPREXA [Suspect]
     Dosage: 25 MG

REACTIONS (3)
  - DIABETES MELLITUS [None]
  - DIABETIC COMA [None]
  - DIABETIC KETOACIDOSIS [None]
